FAERS Safety Report 26132379 (Version 1)
Quarter: 2025Q4

REPORT INFORMATION
  Report Type: Spontaneous
  Country: US (occurrence: None)
  Receive Date: 20251208
  Receipt Date: 20251208
  Transmission Date: 20260118
  Serious: Yes (Hospitalization)
  Sender: FDA-CTU
  Company Number: None

PATIENT
  Sex: Male

DRUGS (3)
  1. ADVATE [Suspect]
     Active Substance: ANTIHEMOPHILIC FACTOR, HUMAN RECOMBINANT
     Indication: Von Willebrand^s disease
     Dosage: 1500IU INTERNATIONAL UNIT(S) AS NEEDED INTRAVENOUS
     Route: 042
     Dates: start: 20250717
  2. HEMLIBRA [Suspect]
     Active Substance: EMICIZUMAB-KXWH
  3. ADVATE [Suspect]
     Active Substance: ANTIHEMOPHILIC FACTOR, HUMAN RECOMBINANT
     Indication: Factor VIII deficiency
     Dosage: 1000 IU INTERNATIONAL UNIT(S) AS NEEDED  INTRAVENOUS
     Route: 042
     Dates: start: 20250717

REACTIONS (1)
  - Blood urine present [None]
